FAERS Safety Report 8245877-7 (Version None)
Quarter: 2012Q1

REPORT INFORMATION
  Report Type: 
  Country: None (occurrence: None)
  Receive Date: 20120328
  Receipt Date: 20120328
  Transmission Date: 20120608
  Serious: No
  Sender: FDA-Public Use
  Company Number: None

PATIENT
  Sex: Female
  Weight: 58.9676 kg

DRUGS (1)
  1. PARAGARD T 380A [Suspect]
     Dates: start: 20110814, end: 20110824

REACTIONS (4)
  - DRUG INEFFECTIVE [None]
  - COMPLICATION OF DEVICE INSERTION [None]
  - URTICARIA [None]
  - PRURITUS [None]
